FAERS Safety Report 4901816-5 (Version None)
Quarter: 2006Q1

REPORT INFORMATION
  Report Type: 
  Country: None (occurrence: None)
  Receive Date: 20060202
  Receipt Date: 20060202
  Transmission Date: 20060701
  Serious: No
  Sender: FDA-Public Use
  Company Number: None

PATIENT
  Sex: Female

DRUGS (1)
  1. OXYCODONE 10MG [Suspect]
     Indication: FIBROMYALGIA
     Dosage: 10MG TID PO
     Route: 048
     Dates: start: 20050101

REACTIONS (4)
  - INADEQUATE ANALGESIA [None]
  - IRRITABILITY [None]
  - NERVOUSNESS [None]
  - URTICARIA [None]
